FAERS Safety Report 5669243-3 (Version None)
Quarter: 2008Q1

REPORT INFORMATION
  Report Type: 
  Country: None (occurrence: None)
  Receive Date: 20080317
  Receipt Date: 20080310
  Transmission Date: 20080703
  Serious: Yes (Other)
  Sender: FDA-Public Use
  Company Number: GB-ROCHE-552587

PATIENT
  Age: 36 Year
  Sex: Male
  Weight: 106.9 kg

DRUGS (6)
  1. ORLISTAT [Suspect]
     Indication: OBESITY
     Route: 048
     Dates: start: 20080109
  2. SIMVASTATIN [Concomitant]
     Route: 048
  3. RAMIPRIL [Concomitant]
     Indication: HYPERTENSION
     Route: 048
  4. UNSPECIFIED DRUG [Concomitant]
     Dosage: THE PATIENT STATED THAT HE TAKES A MEDICATION THAT IS A SUBSTITUTE FOR ASPIRIN
     Route: 048
  5. UNSPECIFIED DRUG [Concomitant]
     Indication: GOUT
     Dosage: THE PATIENT REPORTED THAT HE RECEIVES A MEDICATION FOR GOUT THAT HE COULD NOT REMEMBER THE NAME
     Route: 048
  6. BETA BLOCKER NOS [Concomitant]
     Dosage: THE PATIENT STATED THAT TAKES A BETA BLOCK FOR CARDIAC PROBLEMS THAT HE WAS UNSURE OF THE NAME
     Route: 048

REACTIONS (1)
  - MYOCARDIAL INFARCTION [None]
